FAERS Safety Report 18270601 (Version 2)
Quarter: 2021Q1

REPORT INFORMATION
  Report Type: Report from Study
  Country: CO (occurrence: CO)
  Receive Date: 20200915
  Receipt Date: 20210104
  Transmission Date: 20210419
  Serious: Yes (Hospitalization, Other)
  Sender: FDA-Public Use
  Company Number: CO-JNJFOC-A-CH2019-186618

PATIENT
  Age: 13 Year
  Sex: Male
  Weight: 26 kg

DRUGS (8)
  1. ZAVESCA [Suspect]
     Active Substance: MIGLUSTAT
     Dosage: 200 MG, TID
     Route: 048
     Dates: start: 20190916, end: 20191116
  2. ZAVESCA [Suspect]
     Active Substance: MIGLUSTAT
     Dosage: 200 MG, TID
     Route: 048
     Dates: start: 201911, end: 20191226
  3. ZAVESCA [Suspect]
     Active Substance: MIGLUSTAT
     Dosage: 200 MG, TID
     Route: 048
     Dates: start: 20190406, end: 20190705
  4. ZAVESCA [Suspect]
     Active Substance: MIGLUSTAT
     Indication: NIEMANN-PICK DISEASE
     Dosage: 200 MG, TID
     Route: 048
     Dates: start: 20160429, end: 20190401
  5. ZAVESCA [Suspect]
     Active Substance: MIGLUSTAT
     Dosage: 200 MG, TID
     Route: 048
     Dates: start: 20200110
  6. ZAVESCA [Suspect]
     Active Substance: MIGLUSTAT
     Route: 048
     Dates: start: 20200213
  7. ZAVESCA [Suspect]
     Active Substance: MIGLUSTAT
     Dosage: 200 MG, TID
     Route: 048
     Dates: start: 20190716, end: 20190813
  8. VALPROIC ACID. [Concomitant]
     Active Substance: VALPROIC ACID

REACTIONS (18)
  - Decreased appetite [Not Recovered/Not Resolved]
  - Seizure [Recovering/Resolving]
  - Head injury [Recovering/Resolving]
  - Asthenia [Recovering/Resolving]
  - Pain in extremity [Not Recovered/Not Resolved]
  - Pyrexia [Not Recovered/Not Resolved]
  - Diarrhoea [Recovering/Resolving]
  - Product supply issue [Unknown]
  - Oral mucosal exfoliation [Not Recovered/Not Resolved]
  - Platelet count decreased [Not Recovered/Not Resolved]
  - Pallor [Unknown]
  - Weight decreased [Not Recovered/Not Resolved]
  - Conjunctivitis [Not Recovered/Not Resolved]
  - Gingival erythema [Not Recovered/Not Resolved]
  - Headache [Not Recovered/Not Resolved]
  - Crying [Unknown]
  - Dengue fever [Not Recovered/Not Resolved]
  - Product dose omission issue [Unknown]

NARRATIVE: CASE EVENT DATE: 2019
